FAERS Safety Report 23752712 (Version 6)
Quarter: 2024Q4

REPORT INFORMATION
  Report Type: Spontaneous
  Country: CA (occurrence: CA)
  Receive Date: 20240417
  Receipt Date: 20241114
  Transmission Date: 20250115
  Serious: Yes (Death, Hospitalization, Other)
  Sender: BAUSCH AND LOMB
  Company Number: CA-BAUSCH-BL-2024-005692

PATIENT
  Age: 64 Year
  Sex: Female

DRUGS (21)
  1. DEXAMETHASONE [Suspect]
     Active Substance: DEXAMETHASONE
     Indication: Product used for unknown indication
     Route: 042
  2. AMIVANTAMAB [Suspect]
     Active Substance: AMIVANTAMAB
     Indication: Non-small cell lung cancer metastatic
     Route: 042
  3. AMIVANTAMAB [Suspect]
     Active Substance: AMIVANTAMAB
     Route: 042
  4. AMIVANTAMAB [Suspect]
     Active Substance: AMIVANTAMAB
     Route: 042
  5. AMIVANTAMAB [Suspect]
     Active Substance: AMIVANTAMAB
     Route: 042
  6. AMIVANTAMAB [Suspect]
     Active Substance: AMIVANTAMAB
     Route: 042
  7. AMIVANTAMAB [Suspect]
     Active Substance: AMIVANTAMAB
     Route: 042
  8. AMIVANTAMAB [Suspect]
     Active Substance: AMIVANTAMAB
     Route: 042
  9. AMIVANTAMAB [Suspect]
     Active Substance: AMIVANTAMAB
     Route: 042
  10. AMIVANTAMAB [Suspect]
     Active Substance: AMIVANTAMAB
     Route: 042
  11. AMIVANTAMAB [Suspect]
     Active Substance: AMIVANTAMAB
     Route: 042
  12. AMIVANTAMAB [Suspect]
     Active Substance: AMIVANTAMAB
     Route: 042
  13. BENADRYL [Concomitant]
     Active Substance: DIPHENHYDRAMINE HYDROCHLORIDE
     Indication: Product used for unknown indication
     Route: 042
  14. BENADRYL [Concomitant]
     Active Substance: DIPHENHYDRAMINE HYDROCHLORIDE
     Route: 042
  15. FAMOTIDINE [Concomitant]
     Active Substance: FAMOTIDINE
     Indication: Product used for unknown indication
     Route: 065
  16. FAMOTIDINE [Concomitant]
     Active Substance: FAMOTIDINE
     Route: 042
  17. FAMOTIDINE [Concomitant]
     Active Substance: FAMOTIDINE
     Route: 048
  18. TYLENOL [Concomitant]
     Active Substance: ACETAMINOPHEN
     Indication: Product used for unknown indication
     Route: 042
  19. TYLENOL [Concomitant]
     Active Substance: ACETAMINOPHEN
     Route: 042
  20. METHYLPREDNISOLONE SODIUM SUCCINATE [Concomitant]
     Active Substance: METHYLPREDNISOLONE SODIUM SUCCINATE
     Indication: Product used for unknown indication
     Route: 042
  21. LASIX [Concomitant]
     Active Substance: FUROSEMIDE
     Indication: Product used for unknown indication

REACTIONS (30)
  - Death [Fatal]
  - Myocardial infarction [Fatal]
  - Abdominal pain [Fatal]
  - Bone pain [Fatal]
  - Burning sensation [Fatal]
  - Central nervous system lesion [Fatal]
  - Diarrhoea [Fatal]
  - Feeling drunk [Fatal]
  - Flushing [Fatal]
  - Infusion related reaction [Fatal]
  - Musculoskeletal stiffness [Fatal]
  - Myalgia [Fatal]
  - Pain in extremity [Fatal]
  - Skin discolouration [Fatal]
  - Vomiting [Fatal]
  - Pleural effusion [Fatal]
  - Epistaxis [Fatal]
  - Eye pruritus [Fatal]
  - Loss of consciousness [Fatal]
  - Blood pressure increased [Fatal]
  - Cardiac disorder [Fatal]
  - Dyspnoea [Fatal]
  - Dry skin [Fatal]
  - Acne [Fatal]
  - Erythema [Fatal]
  - Nausea [Fatal]
  - Rash [Fatal]
  - Heart rate increased [Fatal]
  - Vertigo [Fatal]
  - Pulmonary oedema [Fatal]
